FAERS Safety Report 18894257 (Version 1)
Quarter: 2021Q1

REPORT INFORMATION
  Report Type: Spontaneous
  Country: US (occurrence: US)
  Receive Date: 20210215
  Receipt Date: 20210215
  Transmission Date: 20210420
  Serious: No
  Sender: FDA-Public Use
  Company Number: US-009507513-2102USA003934

PATIENT
  Age: 21 Year
  Sex: Female

DRUGS (1)
  1. ETONOGESTREL (+) ETHINYL ESTRADIOL [Suspect]
     Active Substance: ETHINYL ESTRADIOL\ETONOGESTREL
     Dosage: 1 RING (REPORTED AS ^1 (3 RINGS)^)
     Route: 067
     Dates: start: 20210202

REACTIONS (2)
  - Device expulsion [Unknown]
  - Accidental underdose [Unknown]

NARRATIVE: CASE EVENT DATE: 202102
